FAERS Safety Report 9190951 (Version 2)
Quarter: 2013Q1

REPORT INFORMATION
  Report Type: Spontaneous
  Country: JP (occurrence: JP)
  Receive Date: 20130326
  Receipt Date: 20130329
  Transmission Date: 20140127
  Serious: Yes (Death, Hospitalization)
  Sender: FDA-Public Use
  Company Number: JP-ROCHE-1205408

PATIENT
  Age: 65 Year
  Sex: Male

DRUGS (3)
  1. AVASTIN [Suspect]
     Indication: COLON CANCER METASTATIC
     Dosage: DOSAGE IS UNCERTAIN
     Route: 041
     Dates: start: 20130122, end: 20130122
  2. XELODA [Suspect]
     Indication: COLON CANCER METASTATIC
     Dosage: DOSAGE IS UNCERTAIN
     Route: 048
     Dates: start: 20130122, end: 201301
  3. ELPLAT [Concomitant]
     Indication: COLON CANCER METASTATIC
     Dosage: DOSAGE IS UNCERTAIN
     Route: 041
     Dates: start: 20130122, end: 20130122

REACTIONS (2)
  - Colon cancer [Fatal]
  - Cerebral infarction [Recovered/Resolved with Sequelae]
